FAERS Safety Report 8137752-3 (Version None)
Quarter: 2012Q1

REPORT INFORMATION
  Report Type: 
  Country: None (occurrence: None)
  Receive Date: 20120215
  Receipt Date: 20120201
  Transmission Date: 20120608
  Serious: Yes (Other)
  Sender: FDA-Public Use
  Company Number: NZ-MYLANLABS-2012S1002354

PATIENT
  Age: 60 Year
  Sex: Male

DRUGS (22)
  1. FENTANYL-100 [Suspect]
     Route: 062
     Dates: start: 20120127
  2. METOCLOPRAMIDE [Concomitant]
     Indication: PRODUCT USED FOR UNKNOWN INDICATION
     Route: 048
  3. MAGNESIUM [Concomitant]
     Indication: MINERAL SUPPLEMENTATION
  4. ASPIRIN [Concomitant]
     Indication: PRODUCT USED FOR UNKNOWN INDICATION
     Route: 048
  5. RESVERATROL [Concomitant]
     Indication: PRODUCT USED FOR UNKNOWN INDICATION
  6. FENTANYL-100 [Suspect]
     Route: 062
     Dates: start: 20111227, end: 20120126
  7. FENTANYL-100 [Suspect]
     Route: 062
     Dates: start: 20120127
  8. FENTANYL-100 [Suspect]
     Indication: BACK PAIN
     Route: 062
     Dates: start: 20111127, end: 20111226
  9. FENTANYL-100 [Suspect]
     Route: 062
     Dates: start: 20111227, end: 20120126
  10. LAXSOL [Concomitant]
     Indication: CONSTIPATION
     Route: 048
  11. CENTRUM [Concomitant]
     Indication: PRODUCT USED FOR UNKNOWN INDICATION
  12. ESTER C /00008001/ [Concomitant]
     Indication: VITAMIN SUPPLEMENTATION
  13. MORPHINE [Concomitant]
     Indication: PAIN
     Dosage: DOCTOR ASKING TO REDUCE DOSE
     Route: 030
  14. VERAPAMIL [Concomitant]
     Indication: SUPRAVENTRICULAR TACHYCARDIA
     Route: 048
  15. PROBIOTICA [Concomitant]
     Indication: MEDICAL DIET
  16. FENTANYL-100 [Suspect]
     Indication: SCIATICA
     Route: 062
     Dates: start: 20111127, end: 20111226
  17. FLECAINIDE [Concomitant]
     Indication: PRODUCT USED FOR UNKNOWN INDICATION
     Route: 048
  18. FISH OIL [Concomitant]
     Indication: MEDICAL DIET
  19. POTASSIUM CHLORIDE [Concomitant]
     Indication: PRODUCT USED FOR UNKNOWN INDICATION
     Route: 048
  20. SIMVASTATIN [Concomitant]
     Indication: PRODUCT USED FOR UNKNOWN INDICATION
     Route: 048
  21. LACTULOSE [Concomitant]
     Indication: CONSTIPATION
     Route: 048
  22. VITAMIN D [Concomitant]
     Indication: VITAMIN SUPPLEMENTATION

REACTIONS (4)
  - PALPITATIONS [None]
  - IRRITABILITY [None]
  - COLD SWEAT [None]
  - HEADACHE [None]
